FAERS Safety Report 6258455-6 (Version None)
Quarter: 2009Q3

REPORT INFORMATION
  Report Type: 
  Country: None (occurrence: None)
  Receive Date: 20090707
  Receipt Date: 20090625
  Transmission Date: 20100115
  Serious: Yes (Death)
  Sender: FDA-Public Use
  Company Number: JP-PFIZER INC-2009223178

PATIENT
  Age: 58 Year

DRUGS (17)
  1. SUNITINIB MALATE [Suspect]
     Indication: RENAL CANCER
     Dosage: 25 MG, 1X/DAY
     Route: 048
     Dates: start: 20080724, end: 20080820
  2. MS CONTIN [Concomitant]
     Dosage: UNK
     Route: 048
  3. MAGNESIUM OXIDE [Concomitant]
     Dosage: UNK
     Route: 048
  4. NAUZELIN [Concomitant]
     Dosage: UNK
     Route: 048
  5. GASMOTIN [Concomitant]
     Dosage: UNK
     Route: 048
  6. NITRAZEPAM [Concomitant]
     Route: 048
     Dates: end: 20080819
  7. LASIX [Concomitant]
     Dosage: UNK
     Route: 048
  8. CIMETIDINE [Concomitant]
     Dosage: UNK
     Route: 048
  9. MOBIC [Concomitant]
     Dosage: UNK
     Route: 048
  10. TAGAMET [Concomitant]
     Dosage: UNK
     Route: 048
     Dates: start: 20080728
  11. APHTASOLON [Concomitant]
     Dosage: UNK
     Route: 062
     Dates: start: 20080804
  12. AZULENE SODIUM SULFONATE [Concomitant]
     Dosage: UNK
     Route: 050
     Dates: start: 20080807
  13. AFTACH [Concomitant]
     Dosage: UNK
     Dates: start: 20080813
  14. TRAZODONE HYDROCHLORIDE [Concomitant]
     Dosage: UNK
     Route: 048
     Dates: start: 20080820
  15. CLONAZEPAM [Concomitant]
     Dosage: UNK
     Route: 048
     Dates: start: 20080820
  16. LENDORMIN [Concomitant]
     Dosage: UNK
     Route: 048
     Dates: start: 20080820
  17. FENTANYL [Concomitant]
     Dosage: UNK
     Route: 062
     Dates: start: 20080821

REACTIONS (1)
  - DEATH [None]
